FAERS Safety Report 7147766-8 (Version None)
Quarter: 2010Q4

REPORT INFORMATION
  Report Type: 
  Country: None (occurrence: None)
  Receive Date: 20101209
  Receipt Date: 20091104
  Transmission Date: 20110411
  Serious: Yes (Death, Hospitalization)
  Sender: FDA-Public Use
  Company Number: US-BAXTER-2009BH016915

PATIENT
  Age: 85 Year
  Sex: Female

DRUGS (15)
  1. ARALAST [Suspect]
     Indication: ALPHA-1 ANTI-TRYPSIN DEFICIENCY
     Route: 042
     Dates: end: 20091028
  2. ALBUTEROL [Concomitant]
  3. ASPIRIN [Concomitant]
  4. LEVOTHYROXINE SODIUM [Concomitant]
  5. DIGOXIN [Concomitant]
  6. LASIX [Concomitant]
  7. VITAMIN B-12 [Concomitant]
  8. OXYGEN [Concomitant]
  9. ATENOLOL [Concomitant]
  10. FLONASE [Concomitant]
  11. HYDROCHLOROTHIAZIDE [Concomitant]
  12. DILTIAZEM [Concomitant]
  13. SIMVASTATIN [Concomitant]
  14. NORVASC [Concomitant]
  15. MECLIZINE [Concomitant]

REACTIONS (1)
  - PNEUMONIA [None]
